FAERS Safety Report 6673024-1 (Version None)
Quarter: 2010Q2

REPORT INFORMATION
  Report Type: 
  Country: None (occurrence: None)
  Receive Date: 20100408
  Receipt Date: 20100329
  Transmission Date: 20101027
  Serious: Yes (Life-Threatening)
  Sender: FDA-Public Use
  Company Number: B0645946A

PATIENT
  Sex: Male

DRUGS (9)
  1. ATARAX [Suspect]
     Indication: DRUG USE FOR UNKNOWN INDICATION
     Dosage: 25MG PER DAY
     Route: 048
  2. TOPALGIC ( FRANCE ) [Suspect]
     Indication: DRUG USE FOR UNKNOWN INDICATION
     Route: 048
  3. CISPLATIN [Suspect]
     Indication: CHEMOTHERAPY
     Dosage: 70MGM2 PER DAY
     Route: 042
     Dates: start: 20090715, end: 20091019
  4. ASCORBYL PALMITATE [Suspect]
     Indication: CHEMOTHERAPY
     Dosage: 500MGML PER DAY
     Route: 042
     Dates: start: 20090715, end: 20091019
  5. FORLAX [Suspect]
     Indication: DRUG USE FOR UNKNOWN INDICATION
     Dosage: 2UNIT PER DAY
     Route: 048
  6. BROMAZEPAM [Suspect]
     Indication: DRUG USE FOR UNKNOWN INDICATION
     Dosage: 3MG THREE TIMES PER DAY
     Route: 048
  7. VENTOLIN [Suspect]
     Indication: DRUG USE FOR UNKNOWN INDICATION
     Route: 055
  8. ATROVENT [Suspect]
     Indication: DRUG USE FOR UNKNOWN INDICATION
     Route: 055
  9. PULMICORT [Suspect]
     Indication: DRUG USE FOR UNKNOWN INDICATION
     Route: 055

REACTIONS (2)
  - ACUTE RESPIRATORY DISTRESS SYNDROME [None]
  - INTERSTITIAL LUNG DISEASE [None]
